FAERS Safety Report 19373145 (Version 1)
Quarter: 2021Q2

REPORT INFORMATION
  Report Type: Spontaneous
  Country: TR (occurrence: TR)
  Receive Date: 20210604
  Receipt Date: 20210604
  Transmission Date: 20210717
  Serious: Yes (Other)
  Sender: FDA-Public Use
  Company Number: TR-BION-009779

PATIENT
  Age: 37 Year
  Sex: Female

DRUGS (6)
  1. DEFERASIROX. [Suspect]
     Active Substance: DEFERASIROX
     Indication: CHELATION THERAPY
     Dosage: 30 MG/KG/D
     Route: 048
     Dates: start: 202102
  2. PANTOPRAZOLE [Concomitant]
     Active Substance: PANTOPRAZOLE
  3. POSACONAZOLE [Concomitant]
     Active Substance: POSACONAZOLE
  4. CICLOSPORIN [Concomitant]
     Active Substance: CYCLOSPORINE
     Indication: PROPHYLAXIS
     Route: 048
  5. FOLIC ACID. [Concomitant]
     Active Substance: FOLIC ACID
  6. CYANOCOBALAMIN. [Concomitant]
     Active Substance: CYANOCOBALAMIN

REACTIONS (4)
  - Confusional state [Recovered/Resolved]
  - Myoclonus [Recovered/Resolved]
  - Asterixis [Recovered/Resolved]
  - Hyperammonaemia [Recovered/Resolved]
